FAERS Safety Report 23724988 (Version 2)
Quarter: 2024Q2

REPORT INFORMATION
  Report Type: Spontaneous
  Country: JP (occurrence: JP)
  Receive Date: 20240410
  Receipt Date: 20240517
  Transmission Date: 20240716
  Serious: Yes (Hospitalization, Other)
  Sender: FDA-Public Use
  Company Number: JP-GSKJP-JP2024JPN041873

PATIENT
  Age: 43 Year
  Sex: Male

DRUGS (2)
  1. BOTOX [Suspect]
     Active Substance: ONABOTULINUMTOXINA
     Indication: Muscle spasms
     Dosage: TIME INTERVAL: AS NECESSARY: 600 IU, SINGLE
     Route: 065
     Dates: start: 20240325, end: 20240325
  2. XEOMIN [Concomitant]
     Active Substance: INCOBOTULINUMTOXINA
     Indication: Muscle spasms

REACTIONS (2)
  - Encephalopathy [Recovering/Resolving]
  - Altered state of consciousness [Unknown]

NARRATIVE: CASE EVENT DATE: 20240328
